FAERS Safety Report 10071188 (Version 5)
Quarter: 2014Q2

REPORT INFORMATION
  Report Type: Spontaneous
  Country: US (occurrence: US)
  Receive Date: 20140410
  Receipt Date: 20140502
  Transmission Date: 20141212
  Serious: Yes (Other)
  Sender: FDA-Public Use
  Company Number: US-TEVA-474800USA

PATIENT
  Age: 38 Year
  Sex: Female
  Weight: 56.3 kg

DRUGS (3)
  1. PARAGARD 380A [Suspect]
     Indication: CONTRACEPTION
     Route: 015
     Dates: start: 20080908, end: 20140416
  2. NUVARING [Concomitant]
     Indication: MENORRHAGIA
  3. ALBUTEROL [Concomitant]
     Indication: HYPERSENSITIVITY

REACTIONS (5)
  - Embedded device [Recovered/Resolved]
  - Device breakage [Recovered/Resolved]
  - Menorrhagia [Not Recovered/Not Resolved]
  - Vaginal haemorrhage [Unknown]
  - Pain [Unknown]
